FAERS Safety Report 6313110-9 (Version None)
Quarter: 2009Q3

REPORT INFORMATION
  Report Type: 
  Country: None (occurrence: None)
  Receive Date: 20090818
  Receipt Date: 20090806
  Transmission Date: 20100115
  Serious: Yes (Hospitalization)
  Sender: FDA-Public Use
  Company Number: GB-PFIZER INC-2009250977

PATIENT
  Age: 24 Year

DRUGS (4)
  1. SOMATROPIN [Suspect]
     Indication: HYPOPITUITARISM
     Dosage: UNK
     Route: 058
     Dates: start: 20060913
  2. HYDROCORTISONE AND HYDROCORTISONE ACETATE AND HYDROCORTISONE CIPIONATE [Suspect]
     Dosage: 20 MG, UNK
     Dates: start: 19980507
  3. DESMOSPRAY [Suspect]
     Dosage: 20 UG
     Dates: start: 19980507
  4. LEVOTHYROXINE SODIUM [Suspect]
     Dosage: 125 UG
     Dates: start: 19980507

REACTIONS (2)
  - BLOOD POTASSIUM DECREASED [None]
  - BLOOD SODIUM DECREASED [None]
